FAERS Safety Report 8168171-1 (Version None)
Quarter: 2012Q1

REPORT INFORMATION
  Report Type: 
  Country: None (occurrence: None)
  Receive Date: 20120227
  Receipt Date: 20120221
  Transmission Date: 20120608
  Serious: Yes (Other)
  Sender: FDA-Public Use
  Company Number: PHEH2012US002388

PATIENT
  Sex: Female

DRUGS (3)
  1. GILENYA [Suspect]
     Indication: MULTIPLE SCLEROSIS
     Dosage: 0.5 MG, QD
     Route: 048
     Dates: start: 20120126
  2. ORTHO-NOVUM [Concomitant]
     Dosage: UNK OT, QD
  3. CLARITIN [Concomitant]
     Dosage: UNK OT, QD

REACTIONS (4)
  - DIZZINESS [None]
  - CENTRAL NERVOUS SYSTEM LESION [None]
  - BLOOD PRESSURE DECREASED [None]
  - HYPERTENSION [None]
